FAERS Safety Report 16048368 (Version 1)
Quarter: 2019Q1

REPORT INFORMATION
  Report Type: Report from Study
  Country: US (occurrence: US)
  Receive Date: 20190307
  Receipt Date: 20190307
  Transmission Date: 20190418
  Serious: Yes (Hospitalization)
  Sender: FDA-Public Use
  Company Number: US-SA-2018SA103115

PATIENT
  Age: 75 Year
  Sex: Female

DRUGS (1)
  1. INSULIN GLARGINE [Suspect]
     Active Substance: INSULIN GLARGINE
     Indication: DIABETES MELLITUS
     Dosage: 50 U, QD
     Route: 051
     Dates: start: 2008

REACTIONS (4)
  - Pneumonia [Unknown]
  - Nasopharyngitis [Not Recovered/Not Resolved]
  - Cough [Not Recovered/Not Resolved]
  - Product dose omission [Unknown]

NARRATIVE: CASE EVENT DATE: 20171225
